FAERS Safety Report 5796967-X (Version None)
Quarter: 2008Q2

REPORT INFORMATION
  Report Type: 
  Country: None (occurrence: None)
  Receive Date: 20080627
  Receipt Date: 20080612
  Transmission Date: 20081010
  Serious: Yes (Congenital Anomaly)
  Sender: FDA-Public Use
  Company Number: 2007JP001089

PATIENT
  Age: 2 Day
  Sex: Female

DRUGS (3)
  1. TACROLIMUS [Suspect]
     Indication: RENAL TRANSPLANT
     Dosage: 4 MG, UNKNOWN/D, TRASPLACENTAL
     Route: 064
  2. DILTIAZEM [Concomitant]
  3. PREDNISOLONE [Concomitant]

REACTIONS (4)
  - CONGENITAL ANOMALY [None]
  - DRUG EXPOSURE DURING PREGNANCY [None]
  - DRUG EXPOSURE VIA BREAST MILK [None]
  - MATERNAL DRUGS AFFECTING FOETUS [None]
